FAERS Safety Report 4973465-4 (Version None)
Quarter: 2006Q2

REPORT INFORMATION
  Report Type: 
  Country: None (occurrence: None)
  Receive Date: 20060414
  Receipt Date: 20060407
  Transmission Date: 20061013
  Serious: Yes (Hospitalization)
  Sender: FDA-Public Use
  Company Number: FR-SANOFI-SYNTHELABO-F01200600986

PATIENT
  Sex: Male
  Weight: 63 kg

DRUGS (5)
  1. OXALIPLATIN [Suspect]
     Indication: OESOPHAGEAL CARCINOMA
     Route: 042
     Dates: start: 20050826, end: 20050826
  2. FLUOROURACIL [Suspect]
     Dosage: 400 MG/M2 BOLUS DAY 1, 600 MG/M2 INFUSION DAYS 1 AND 2
     Route: 042
     Dates: start: 20050826, end: 20050827
  3. LEUCOVORIN [Suspect]
     Route: 042
     Dates: start: 20050826, end: 20050827
  4. RADIOTHERAPY [Concomitant]
     Indication: OESOPHAGEAL CARCINOMA
     Dosage: TOTAL DOSE OF FRACTION ADMINISTERED BEFORE SAE: 50GY
     Route: 050
     Dates: start: 20050715, end: 20050822
  5. DURAGESIC-100 [Concomitant]

REACTIONS (4)
  - CHEST PAIN [None]
  - DYSPHAGIA [None]
  - OEDEMA PERIPHERAL [None]
  - PYREXIA [None]
